FAERS Safety Report 8261566-7 (Version None)
Quarter: 2012Q2

REPORT INFORMATION
  Report Type: 
  Country: None (occurrence: None)
  Receive Date: 20120405
  Receipt Date: 20120322
  Transmission Date: 20120825
  Serious: Yes (Hospitalization)
  Sender: FDA-Public Use
  Company Number: BR-PFIZER INC-2012082860

PATIENT
  Sex: Male

DRUGS (7)
  1. AMLODIPINE BESYLATE AND OLMESARTAN MEDOXOMIL [Suspect]
     Indication: HYPERTENSION
     Dosage: 20/5MG, ONCE DAILY
     Route: 048
     Dates: start: 20090101, end: 20120321
  2. HYDROCHLOROTHIAZIDE [Concomitant]
  3. DICLOFENAC SODIUM [Suspect]
     Indication: PROSTATITIS
     Dosage: UNK
     Route: 048
     Dates: start: 20100101, end: 20100101
  4. AMLODIPINE BESYLATE AND OLMESARTAN MEDOXOMIL [Suspect]
     Dosage: 40/5MG, ONCE DAILY
     Route: 048
     Dates: start: 20120322
  5. CHLORAMPHENICOL [Suspect]
     Indication: PROSTATITIS
     Dosage: UNK
     Route: 048
     Dates: start: 20100101, end: 20100101
  6. SITAGLIPTIN AND METFORMIN HYDROCHLORIDE [Concomitant]
  7. AMILORIDE HCL AND HYDROCHLOROTHIAZIDE [Suspect]
     Dosage: UNK
     Route: 048
     Dates: start: 20090101, end: 20111201

REACTIONS (3)
  - DRUG INEFFECTIVE [None]
  - PROSTATOMEGALY [None]
  - PROSTATITIS [None]
